FAERS Safety Report 6453515-9 (Version None)
Quarter: 2009Q4

REPORT INFORMATION
  Report Type: 
  Country: None (occurrence: None)
  Receive Date: 20091124
  Receipt Date: 20090924
  Transmission Date: 20100525
  Serious: Yes (Hospitalization, Other)
  Sender: FDA-Public Use
  Company Number: US-BAYER-200937946NA

PATIENT
  Age: 29 Year
  Sex: Female

DRUGS (3)
  1. YAZ [Suspect]
     Indication: OVARIAN CYST
  2. YASMIN [Suspect]
     Indication: DRUG USE FOR UNKNOWN INDICATION
  3. LORTAB [Concomitant]

REACTIONS (2)
  - GALLBLADDER OPERATION [None]
  - PULMONARY EMBOLISM [None]
